FAERS Safety Report 8288838-4 (Version None)
Quarter: 2012Q2

REPORT INFORMATION
  Report Type: 
  Country: None (occurrence: None)
  Receive Date: 20120417
  Receipt Date: 20120409
  Transmission Date: 20120825
  Serious: Yes (Hospitalization)
  Sender: FDA-Public Use
  Company Number: US-BIOGENIDEC-2011BI045515

PATIENT
  Age: 58 Year
  Sex: Female

DRUGS (1)
  1. AVONEX [Suspect]
     Indication: MULTIPLE SCLEROSIS
     Route: 030
     Dates: start: 20110502

REACTIONS (6)
  - MULTIPLE SCLEROSIS RELAPSE [None]
  - RAYNAUD'S PHENOMENON [None]
  - MUSCLE STRAIN [None]
  - FALL [None]
  - OPTIC NEURITIS [None]
  - INJECTION SITE SCAR [None]
